FAERS Safety Report 5258458-4 (Version None)
Quarter: 2007Q1

REPORT INFORMATION
  Report Type: 
  Country: None (occurrence: None)
  Receive Date: 20070308
  Receipt Date: 20070226
  Transmission Date: 20070707
  Serious: Yes (Disabling, Other)
  Sender: FDA-Public Use
  Company Number: PHEH2004US07662

PATIENT
  Sex: Female

DRUGS (4)
  1. VIVELLE [Suspect]
     Indication: HORMONE REPLACEMENT THERAPY
     Dosage: 0.05 MG/DAY, UNK
     Route: 062
     Dates: start: 19960620
  2. PREMARIN [Suspect]
     Indication: HORMONE REPLACEMENT THERAPY
     Dosage: 0.062 MG, UNK
     Route: 048
     Dates: start: 19960308
  3. CLIMARA ^SCHERING^ [Suspect]
     Indication: HORMONE REPLACEMENT THERAPY
     Dosage: 0.1 MG, UNK
     Dates: start: 19970701
  4. ESTRACE [Suspect]
     Indication: HORMONE REPLACEMENT THERAPY
     Dosage: 1 MG, UNK
     Dates: start: 19970627

REACTIONS (20)
  - ANXIETY [None]
  - ARRHYTHMIA [None]
  - BREAST CANCER IN SITU [None]
  - CHEST PAIN [None]
  - ELECTROCARDIOGRAM AMBULATORY ABNORMAL [None]
  - EMOTIONAL DISTRESS [None]
  - INJURY [None]
  - INTERVERTEBRAL DISC PROTRUSION [None]
  - LABORATORY TEST ABNORMAL [None]
  - MAMMOGRAM ABNORMAL [None]
  - NAUSEA [None]
  - NIPPLE PAIN [None]
  - PALPITATIONS [None]
  - PRESYNCOPE [None]
  - RHINITIS ALLERGIC [None]
  - SCAR [None]
  - SUPRAVENTRICULAR EXTRASYSTOLES [None]
  - SYNCOPE [None]
  - UTERINE LEIOMYOMA [None]
  - VENTRICULAR EXTRASYSTOLES [None]
